FAERS Safety Report 9292965 (Version 2)
Quarter: 2013Q3

REPORT INFORMATION
  Report Type: Report from Study
  Country: PL (occurrence: PL)
  Receive Date: 20130516
  Receipt Date: 20130703
  Transmission Date: 20140515
  Serious: Yes (Life-Threatening, Hospitalization)
  Sender: FDA-Public Use
  Company Number: PL-AMGEN-POLNI2013034426

PATIENT
  Age: 63 Year
  Sex: Female

DRUGS (7)
  1. DARBEPOETIN ALFA [Suspect]
     Indication: ANAEMIA
     Dosage: 900 MUG, UNK
     Route: 058
     Dates: start: 20130506
  2. DEXAMETHASONE [Suspect]
     Dosage: 20 MG, BID
     Route: 042
     Dates: start: 20130506, end: 20130507
  3. RANITIDINE [Concomitant]
     Dosage: 75 MG, TID
     Route: 042
     Dates: start: 20130506, end: 20130507
  4. CLEMASTINE [Concomitant]
     Dosage: 2 MG, QD
     Route: 042
     Dates: start: 20130507, end: 20130507
  5. PACLITAXEL [Concomitant]
     Dosage: 294 MG, UNK
     Route: 042
     Dates: start: 20130507, end: 20130507
  6. IFOSFAMIDE [Concomitant]
     Dosage: 2520 MG, UNK
     Route: 042
     Dates: start: 20130508, end: 20130510
  7. MESNA [Concomitant]
     Dosage: 519 MG, UNK
     Route: 042
     Dates: start: 20130508, end: 20130510

REACTIONS (1)
  - Cerebrovascular accident [Recovered/Resolved]
